FAERS Safety Report 8092028-8 (Version None)
Quarter: 2012Q1

REPORT INFORMATION
  Report Type: 
  Country: None (occurrence: None)
  Receive Date: 20120129
  Receipt Date: 20111220
  Transmission Date: 20120608
  Serious: No
  Sender: FDA-Public Use
  Company Number: US-ABBOTT-11P-163-0869824-00

PATIENT
  Age: 48 Year
  Sex: Male

DRUGS (4)
  1. NEXIUM [Concomitant]
     Indication: GASTROOESOPHAGEAL REFLUX DISEASE
     Dosage: DAILY
  2. COZAAR [Concomitant]
     Indication: HYPERTENSION
     Dosage: DAILY
  3. NIFEDIPINE [Concomitant]
     Indication: HYPERTENSION
     Dosage: DAILY
  4. HUMIRA [Suspect]
     Indication: PSORIASIS
     Dates: start: 20110913, end: 20111027

REACTIONS (5)
  - RESPIRATORY TRACT CONGESTION [None]
  - NASOPHARYNGITIS [None]
  - INFLUENZA [None]
  - RHINITIS [None]
  - OROPHARYNGEAL PAIN [None]
